FAERS Safety Report 10381129 (Version 2)
Quarter: 2014Q3

REPORT INFORMATION
  Report Type: Spontaneous
  Country: FR (occurrence: FR)
  Receive Date: 20140813
  Receipt Date: 20140819
  Transmission Date: 20150326
  Serious: Yes (Hospitalization)
  Sender: FDA-Public Use
  Company Number: FR-PFIZER INC-2014223606

PATIENT
  Age: 78 Year
  Sex: Female

DRUGS (13)
  1. CORDARONE [Suspect]
     Active Substance: AMIODARONE HYDROCHLORIDE
     Dosage: 6 TABLETS AROUND 03:00 THEN 4 TABLETS IN THE MORNING
     Route: 048
     Dates: start: 20140103, end: 20140103
  2. RISORDAN [Concomitant]
     Active Substance: ISOSORBIDE DINITRATE
     Dosage: UNK
     Dates: start: 20140103
  3. NEBILOX [Concomitant]
     Active Substance: NEBIVOLOL HYDROCHLORIDE
     Indication: CARDIOPULMONARY FAILURE
     Dosage: UNK
     Dates: start: 20140103
  4. CORDARONE [Suspect]
     Active Substance: AMIODARONE HYDROCHLORIDE
     Dosage: 4 DF, IN THE MORNING
     Route: 048
     Dates: start: 20140104, end: 20140104
  5. KARDEGIC [Concomitant]
     Active Substance: ASPIRIN LYSINE
  6. NEBIVOLOL ACTAVIS [Concomitant]
     Active Substance: NEBIVOLOL
     Indication: CARDIAC FAILURE CHRONIC
     Dosage: 1 DF, UNK
     Route: 048
     Dates: end: 20140102
  7. FUROSEMIDE RENAUDIN [Concomitant]
     Active Substance: FUROSEMIDE
     Indication: CARDIAC FAILURE
     Dosage: UNK
     Route: 042
  8. KALEORID [Concomitant]
     Active Substance: POTASSIUM CHLORIDE
     Dosage: UNK
     Dates: end: 201401
  9. BISOPROLOL ARROW [Concomitant]
     Active Substance: BISOPROLOL
     Indication: CARDIAC FAILURE
     Dosage: 5 MG, DAILY
     Dates: start: 20140103, end: 20140104
  10. ATACAND [Concomitant]
     Active Substance: CANDESARTAN CILEXETIL
     Dosage: UNK
     Dates: end: 201401
  11. CORDARONE [Suspect]
     Active Substance: AMIODARONE HYDROCHLORIDE
     Indication: ATRIAL FIBRILLATION
     Dosage: 1 DF, DAILY
     Route: 048
     Dates: start: 20101209, end: 20140104
  12. BISOPROLOL ARROW [Concomitant]
     Active Substance: BISOPROLOL
     Dosage: 2.5 MG, 1X/DAY
     Dates: start: 20140106
  13. LASILIX [Concomitant]
     Active Substance: FUROSEMIDE
     Indication: CARDIOPULMONARY FAILURE
     Dosage: UNK
     Dates: start: 20140103

REACTIONS (1)
  - Thyroid disorder [Not Recovered/Not Resolved]

NARRATIVE: CASE EVENT DATE: 20140103
